FAERS Safety Report 4463160-2 (Version None)
Quarter: 2004Q3

REPORT INFORMATION
  Report Type: 
  Country: None (occurrence: None)
  Receive Date: 20040930
  Receipt Date: 20040921
  Transmission Date: 20050211
  Serious: Yes (Other)
  Sender: FDA-Public Use
  Company Number: JP-MERCK-0409USA02235

PATIENT
  Age: 63 Year
  Sex: Female

DRUGS (1)
  1. PEPCID [Suspect]
     Route: 048

REACTIONS (1)
  - RHABDOMYOLYSIS [None]
